FAERS Safety Report 6891607-0 (Version None)
Quarter: 2010Q3

REPORT INFORMATION
  Report Type: 
  Country: None (occurrence: None)
  Receive Date: 20100731
  Receipt Date: 20070727
  Transmission Date: 20110219
  Serious: No
  Sender: FDA-Public Use
  Company Number: US-PFIZER INC-2007064253

PATIENT
  Sex: Female
  Weight: 51.26 kg

DRUGS (5)
  1. NORVASC [Suspect]
     Indication: BLOOD PRESSURE
  2. VITAMINS [Concomitant]
  3. ACETYLSALICYLIC ACID SRT [Concomitant]
  4. CHONDROITIN/GLUCOSAMINE [Concomitant]
     Indication: ARTHROPATHY
  5. CALCIUM WITH VITAMIN D [Concomitant]

REACTIONS (1)
  - OEDEMA PERIPHERAL [None]
